FAERS Safety Report 5884148-0 (Version None)
Quarter: 2008Q3

REPORT INFORMATION
  Report Type: 
  Country: None (occurrence: None)
  Receive Date: 20080915
  Receipt Date: 20080909
  Transmission Date: 20090109
  Serious: Yes (Other)
  Sender: FDA-Public Use
  Company Number: PHHY2008CA20219

PATIENT
  Sex: Male

DRUGS (2)
  1. CLOZARIL [Suspect]
     Dosage: UNK
     Route: 048
     Dates: start: 20070101, end: 20071001
  2. TYLENOL (CAPLET) [Suspect]

REACTIONS (9)
  - ABNORMAL BEHAVIOUR [None]
  - AGGRESSION [None]
  - CATATONIA [None]
  - DELUSION [None]
  - DEPRESSION [None]
  - HALLUCINATION [None]
  - INTENTIONAL OVERDOSE [None]
  - MUSCLE RIGIDITY [None]
  - RENAL FAILURE [None]
